FAERS Safety Report 9580968 (Version 1)
Quarter: 2013Q4

REPORT INFORMATION
  Report Type: Spontaneous
  Country: US (occurrence: None)
  Receive Date: 20131001
  Receipt Date: 20131001
  Transmission Date: 20140711
  Serious: Yes (Disabling)
  Sender: FDA-Public Use
  Company Number: None

PATIENT
  Age: 60 Year
  Sex: Male
  Weight: 92.53 kg

DRUGS (2)
  1. BYETTA [Suspect]
     Indication: TYPE 2 DIABETES MELLITUS
  2. BYDUREON [Suspect]
     Indication: TYPE 2 DIABETES MELLITUS

REACTIONS (4)
  - Drug effect decreased [None]
  - Hiatus hernia [None]
  - Abdominal distension [None]
  - Gastrooesophageal reflux disease [None]
